FAERS Safety Report 6537840-9 (Version None)
Quarter: 2009Q4

REPORT INFORMATION
  Report Type: 
  Country: None (occurrence: None)
  Receive Date: 20091229
  Receipt Date: 20091110
  Transmission Date: 20100525
  Serious: No
  Sender: FDA-Public Use
  Company Number: 1000009881

PATIENT
  Age: 65 Year
  Sex: Female
  Weight: 99.3377 kg

DRUGS (4)
  1. BYSTOLIC [Suspect]
     Indication: HYPERTENSION
     Dosage: 2.5 MG (2.5 MG,1 IN 1 D),ORAL
     Route: 048
     Dates: start: 20090701, end: 20090904
  2. CLARINEX [Concomitant]
  3. LOVAZA [Concomitant]
  4. ACIPHEX [Concomitant]

REACTIONS (2)
  - BLOOD PRESSURE SYSTOLIC DECREASED [None]
  - TACHYCARDIA [None]
